FAERS Safety Report 8263223-X (Version None)
Quarter: 2012Q2

REPORT INFORMATION
  Report Type: 
  Country: None (occurrence: None)
  Receive Date: 20120405
  Receipt Date: 20120328
  Transmission Date: 20120825
  Serious: Yes (Congenital Anomaly)
  Sender: FDA-Public Use
  Company Number: DE-TEVA-328153GER

PATIENT
  Age: 0 Year
  Sex: Female
  Weight: 65 kg

DRUGS (3)
  1. LAMOTRGINE [Suspect]
     Route: 064
     Dates: start: 20101213, end: 20110922
  2. FOLSAURE SANDOZ [Concomitant]
     Route: 064
     Dates: start: 20101213
  3. LAMOTRGINE [Suspect]
     Route: 063
     Dates: start: 20110922, end: 20111101

REACTIONS (3)
  - HAEMANGIOMA [None]
  - THROMBOCYTOSIS [None]
  - HIP DYSPLASIA [None]
